FAERS Safety Report 8347369-3 (Version None)
Quarter: 2012Q2

REPORT INFORMATION
  Report Type: 
  Country: None (occurrence: None)
  Receive Date: 20120507
  Receipt Date: 20110906
  Transmission Date: 20120825
  Serious: Yes (Hospitalization)
  Sender: FDA-Public Use
  Company Number: GNE319201

PATIENT
  Age: 25 Year
  Sex: Female

DRUGS (3)
  1. NEURONTIN [Concomitant]
  2. OMALIZUMAB (OMALUZUMAB) (150 MG, INJECTION, POWDER) (ACTIVE DRUG) [Suspect]
     Indication: ASTHMA
     Dates: start: 20090203, end: 20090801
  3. XANAX [Concomitant]

REACTIONS (4)
  - HAEMORRHOID OPERATION [None]
  - POST PROCEDURAL HAEMORRHAGE [None]
  - FULL BLOOD COUNT ABNORMAL [None]
  - HAEMATOCRIT DECREASED [None]
